FAERS Safety Report 23569745 (Version 2)
Quarter: 2024Q1

REPORT INFORMATION
  Report Type: Spontaneous
  Country: DE (occurrence: DE)
  Receive Date: 20240227
  Receipt Date: 20240316
  Transmission Date: 20240410
  Serious: Yes (Life-Threatening, Hospitalization, Other)
  Sender: FDA-Public Use
  Company Number: DE-MACLEODS PHARMACEUTICALS US LTD-MAC2024045995

PATIENT

DRUGS (2)
  1. PANTOPRAZOLE [Suspect]
     Active Substance: PANTOPRAZOLE
     Indication: Product used for unknown indication
     Dosage: UNK (STOP DATE 2022) STANDARD DOSE, (BDF)
     Route: 065
  2. INCLISIRAN [Suspect]
     Active Substance: INCLISIRAN
     Indication: Myopathy
     Dosage: UNK, (START DATE OCT 2022)
     Route: 058

REACTIONS (2)
  - Hepatic fibrosis [Recovering/Resolving]
  - Disease progression [Recovering/Resolving]
